FAERS Safety Report 9320133 (Version 1)
Quarter: 2013Q2

REPORT INFORMATION
  Report Type: Spontaneous
  Country: US (occurrence: US)
  Receive Date: 20130530
  Receipt Date: 20130530
  Transmission Date: 20140414
  Serious: No
  Sender: FDA-Public Use
  Company Number: US-UPSHER-SMITH LABORATORIES, INC.-12003344

PATIENT
  Age: 67 Year
  Sex: Male

DRUGS (8)
  1. KLOR-CON [Suspect]
     Indication: BLOOD POTASSIUM DECREASED
     Dosage: 10 MEQ, QD
     Route: 048
     Dates: start: 2011, end: 201206
  2. KLOR-CON TABLETS [Suspect]
     Dosage: 20 MEQ, QD
     Route: 048
     Dates: start: 201206, end: 201211
  3. VITAMIN D                          /00107901/ [Concomitant]
     Dosage: UNK
  4. HYDROCHLOROTHIAZIDE WITH TRIAMTERENE [Concomitant]
     Dosage: UNK
     Dates: end: 201212
  5. BABY ASPIRIN [Concomitant]
     Dosage: UNK
  6. AMLODIPINE BESYLATE [Concomitant]
     Dosage: UNK
  7. LISINOPRIL [Concomitant]
     Dosage: UNK
  8. SIMVASTATIN [Concomitant]
     Dosage: UNK

REACTIONS (3)
  - Melaena [Recovered/Resolved]
  - Abdominal pain [Recovered/Resolved]
  - Drug ineffective [Unknown]
